FAERS Safety Report 21992353 (Version 2)
Quarter: 2023Q1

REPORT INFORMATION
  Report Type: Spontaneous
  Country: US (occurrence: US)
  Receive Date: 20230215
  Receipt Date: 20230221
  Transmission Date: 20230417
  Serious: Yes (Hospitalization)
  Sender: FDA-Public Use
  Company Number: US-BAXTER-2023BAX012463

PATIENT
  Age: 28 Year
  Sex: Female

DRUGS (2)
  1. PENICILLIN G [Suspect]
     Active Substance: PENICILLIN G
     Indication: Ear infection
     Dosage: UNREPORTED DOSE AND FREQUENCY
     Route: 042
     Dates: start: 202206, end: 202206
  2. PENICILLIN [Suspect]
     Active Substance: PENICILLIN
     Indication: Ear infection
     Dosage: UNK
     Route: 048
     Dates: start: 202206, end: 202206

REACTIONS (7)
  - Amnesia [Recovered/Resolved]
  - Confusional state [Unknown]
  - Disease progression [Recovered/Resolved]
  - Adverse drug reaction [Unknown]
  - General symptom [Unknown]
  - Drug hypersensitivity [Unknown]
  - Pruritus [Recovered/Resolved]

NARRATIVE: CASE EVENT DATE: 20220601
